FAERS Safety Report 17086255 (Version 1)
Quarter: 2019Q4

REPORT INFORMATION
  Report Type: Spontaneous
  Country: US (occurrence: US)
  Receive Date: 20191127
  Receipt Date: 20191127
  Transmission Date: 20200122
  Serious: Yes (Other)
  Sender: FDA-Public Use
  Company Number: None

PATIENT
  Age: 9 Year
  Sex: Male
  Weight: 24 kg

DRUGS (2)
  1. DABRAFENIB [Suspect]
     Active Substance: DABRAFENIB
     Indication: LANGERHANS^ CELL HISTIOCYTOSIS
     Dosage: ?          OTHER FREQUENCY:EVERY OTHER DAY;?
     Dates: start: 20190913
  2. DABRAFENIB [Suspect]
     Active Substance: DABRAFENIB
     Dosage: ?          OTHER FREQUENCY:EVERY OTHER DAY;?
     Dates: start: 20190913

REACTIONS (1)
  - Varicella zoster virus infection [None]

NARRATIVE: CASE EVENT DATE: 20191127
